FAERS Safety Report 14285729 (Version 4)
Quarter: 2019Q4

REPORT INFORMATION
  Report Type: Report from Study
  Country: IL (occurrence: IL)
  Receive Date: 20171214
  Receipt Date: 20191010
  Transmission Date: 20200122
  Serious: Yes (Hospitalization)
  Sender: FDA-Public Use
  Company Number: IL-ACTELION-A-CH2017-163810

PATIENT
  Age: 38 Year
  Sex: Female

DRUGS (11)
  1. UPTRAVI [Suspect]
     Active Substance: SELEXIPAG
     Indication: PULMONARY ARTERIAL HYPERTENSION
     Dosage: 200 MCG, BID
     Route: 048
     Dates: start: 20171114
  2. UPTRAVI [Suspect]
     Active Substance: SELEXIPAG
     Dosage: 400 MCG, BID
     Route: 048
     Dates: end: 20190929
  3. REVATIO [Concomitant]
     Active Substance: SILDENAFIL CITRATE
  4. ASPIRIN. [Concomitant]
     Active Substance: ASPIRIN
  5. PRIMOLUT-NOR [Concomitant]
     Active Substance: NORETHINDRONE ACETATE
     Dosage: UNK
     Dates: start: 20171121
  6. OPSUMIT [Suspect]
     Active Substance: MACITENTAN
     Indication: PULMONARY ARTERIAL HYPERTENSION
     Dosage: 10 MG, QD
     Route: 048
     Dates: start: 201705
  7. OMEPRADEX [Concomitant]
     Active Substance: OMEPRAZOLE
  8. TRITACE [Concomitant]
     Active Substance: RAMIPRIL
     Route: 042
  9. CARDILOC [Concomitant]
     Active Substance: BISOPROLOL FUMARATE
  10. FOLIC ACID. [Concomitant]
     Active Substance: FOLIC ACID
  11. VITAMIN B12 [Concomitant]
     Active Substance: CYANOCOBALAMIN

REACTIONS (13)
  - Oedema peripheral [Recovering/Resolving]
  - Intra-uterine contraceptive device removal [Unknown]
  - Pain in extremity [Recovering/Resolving]
  - Condition aggravated [Unknown]
  - Pulmonary arterial hypertension [Unknown]
  - Pyrexia [Recovered/Resolved]
  - Haemoglobin decreased [Recovering/Resolving]
  - Arthritis infective [Recovered/Resolved]
  - Joint swelling [Recovered/Resolved]
  - Headache [Recovered/Resolved]
  - Vaginal haemorrhage [Recovering/Resolving]
  - Dyspnoea [Recovering/Resolving]
  - Transfusion [Unknown]

NARRATIVE: CASE EVENT DATE: 201711
